FAERS Safety Report 10054866 (Version 4)
Quarter: 2014Q2

REPORT INFORMATION
  Report Type: Spontaneous
  Country: US (occurrence: US)
  Receive Date: 20140402
  Receipt Date: 20140430
  Transmission Date: 20141212
  Serious: No
  Sender: FDA-Public Use
  Company Number: US-009507513-1404USA001077

PATIENT
  Age: 17 Year
  Sex: Female
  Weight: 61.22 kg

DRUGS (2)
  1. NEXPLANON [Suspect]
     Indication: CONTRACEPTION
     Dosage: 1 ROD
     Route: 058
     Dates: start: 20140328, end: 20140331
  2. NEXPLANON [Suspect]
     Dosage: UNK
     Route: 058
     Dates: start: 201404

REACTIONS (2)
  - Device expulsion [Recovered/Resolved]
  - Application site discomfort [Recovered/Resolved]
